FAERS Safety Report 9915804 (Version 1)
Quarter: 2014Q1

REPORT INFORMATION
  Report Type: Report from Study
  Country: US (occurrence: US)
  Receive Date: 20140221
  Receipt Date: 20140221
  Transmission Date: 20141002
  Serious: Yes (Other)
  Sender: FDA-Public Use
  Company Number: US-ROCHE-1332795

PATIENT
  Age: 78 Year
  Sex: Male
  Weight: 99.43 kg

DRUGS (16)
  1. LUCENTIS [Suspect]
     Indication: AGE-RELATED MACULAR DEGENERATION
     Route: 050
     Dates: start: 20101108
  2. LUCENTIS [Suspect]
     Indication: VENOUS OCCLUSION
     Route: 050
     Dates: start: 20101004
  3. LUCENTIS [Suspect]
     Indication: RETINAL OEDEMA
     Route: 050
     Dates: start: 20100830
  4. LUCENTIS [Suspect]
     Route: 050
     Dates: start: 20111010
  5. LUCENTIS [Suspect]
     Route: 050
     Dates: start: 20120326
  6. AVASTIN [Suspect]
     Indication: AGE-RELATED MACULAR DEGENERATION
     Dosage: OS
     Route: 050
     Dates: start: 20080630
  7. AVASTIN [Suspect]
     Dosage: OS
     Route: 050
     Dates: start: 20080728
  8. AMLODIPINE [Concomitant]
  9. BENAZEPRIL HYDROCHLORIDE [Concomitant]
  10. CLINDAMYCIN HCL [Concomitant]
     Route: 048
  11. CRESTOR [Concomitant]
  12. FISH OIL [Concomitant]
     Route: 048
  13. METFORMIN HYDROCHLORIDE [Concomitant]
  14. OCUFLOX [Concomitant]
     Dosage: 1 GTT 4 TIMES
     Route: 047
     Dates: start: 20101010, end: 20120123
  15. ZYMAR [Concomitant]
     Dosage: OS
     Route: 065
     Dates: start: 20080630, end: 20080825
  16. OCUVITE PRESERVISION [Concomitant]
     Dosage: 2 TABLETS BID
     Route: 065

REACTIONS (14)
  - Blepharitis [Unknown]
  - Macular oedema [Unknown]
  - Hearing impaired [Unknown]
  - Pollakiuria [Unknown]
  - Micturition urgency [Unknown]
  - Macular scar [Unknown]
  - Eye oedema [Unknown]
  - Retinal disorder [Unknown]
  - Retinal degeneration [Unknown]
  - Retinal degeneration [Unknown]
  - Dry eye [Unknown]
  - Macular degeneration [Unknown]
  - Choroidal neovascularisation [Unknown]
  - Pinguecula [Unknown]
